FAERS Safety Report 12739839 (Version 1)
Quarter: 2016Q3

REPORT INFORMATION
  Report Type: Spontaneous
  Country: US (occurrence: US)
  Receive Date: 20160910
  Receipt Date: 20160910
  Transmission Date: 20161109
  Serious: Yes (Death, Hospitalization)
  Sender: FDA-Public Use
  Company Number: None

PATIENT
  Age: 11 Year
  Sex: Female
  Weight: 127.1 kg

DRUGS (5)
  1. METHOTREXATE. [Suspect]
     Active Substance: METHOTREXATE
     Dates: end: 20160810
  2. CYTARABINE. [Suspect]
     Active Substance: CYTARABINE
     Dates: end: 20160801
  3. PREDNISONE. [Suspect]
     Active Substance: PREDNISONE
     Dates: end: 20160828
  4. DAUNORUBICIN [Suspect]
     Active Substance: DAUNORUBICIN
     Dates: end: 20160824
  5. ONCASPAR [Suspect]
     Active Substance: PEGASPARGASE
     Dates: end: 20160828

REACTIONS (29)
  - Enterococcus test positive [None]
  - Fungaemia [None]
  - Jaundice [None]
  - Lactic acidosis [None]
  - Kussmaul respiration [None]
  - Pulmonary haemorrhage [None]
  - Cardio-respiratory arrest [None]
  - Condition aggravated [None]
  - Thrombocytopenia [None]
  - Colitis [None]
  - Hypoglycaemia [None]
  - Nausea [None]
  - Mental status changes [None]
  - Neutropenia [None]
  - Vomiting [None]
  - Metabolic acidosis [None]
  - Glucose tolerance impaired [None]
  - Bacteraemia [None]
  - Sepsis [None]
  - Acute kidney injury [None]
  - Hepatic function abnormal [None]
  - Hepatomegaly [None]
  - Disseminated intravascular coagulation [None]
  - Coagulopathy [None]
  - Bacteroides test positive [None]
  - Fatigue [None]
  - Dysarthria [None]
  - Hypotension [None]
  - Incoherent [None]

NARRATIVE: CASE EVENT DATE: 20160826
